FAERS Safety Report 22985088 (Version 3)
Quarter: 2024Q2

REPORT INFORMATION
  Report Type: Other
  Country: US (occurrence: None)
  Receive Date: 20230926
  Receipt Date: 20240524
  Transmission Date: 20240716
  Serious: Yes (Other)
  Sender: FDA-Public Use
  Company Number: US-ROCHE-2873845

PATIENT
  Age: 70 Year
  Sex: Female

DRUGS (2)
  1. ALECENSA [Suspect]
     Active Substance: ALECTINIB HYDROCHLORIDE
     Indication: Lung neoplasm malignant
     Dosage: TAKE 4 CAPSULE(S) BY MOUTH TWICE A DAY WITH FOOD
     Route: 048
  2. ALECENSA [Suspect]
     Active Substance: ALECTINIB HYDROCHLORIDE
     Indication: Non-small cell lung cancer
     Dosage: TAKE 3 CAPSULE(S) BY MOUTH TWICE A DAY WITH FOOD
     Route: 048

REACTIONS (11)
  - Brain neoplasm malignant [Unknown]
  - Anaemia [Unknown]
  - Fatigue [Unknown]
  - Renal pain [Unknown]
  - Myalgia [Unknown]
  - Hypokinesia [Unknown]
  - Arthralgia [Unknown]
  - Muscle fatigue [Unknown]
  - Neuropathy peripheral [Unknown]
  - Joint swelling [Unknown]
  - Somnolence [Unknown]
